FAERS Safety Report 8076443-4 (Version None)
Quarter: 2012Q1

REPORT INFORMATION
  Report Type: 
  Country: None (occurrence: None)
  Receive Date: 20120127
  Receipt Date: 20120124
  Transmission Date: 20120608
  Serious: Yes (Hospitalization, Other)
  Sender: FDA-Public Use
  Company Number: US-ROCHE-790251

PATIENT
  Sex: Female
  Weight: 61.29 kg

DRUGS (5)
  1. ACCUTANE [Suspect]
  2. ACCUTANE [Suspect]
     Indication: ACNE
     Dates: start: 20001201, end: 20010701
  3. PREDNISONE TAB [Concomitant]
  4. ALBUTEROL [Concomitant]
  5. ACCUTANE [Suspect]
     Dates: start: 20020101, end: 20020901

REACTIONS (4)
  - COLITIS [None]
  - INFLAMMATORY BOWEL DISEASE [None]
  - IRRITABLE BOWEL SYNDROME [None]
  - INTESTINAL HAEMORRHAGE [None]
